FAERS Safety Report 9992477 (Version 2)
Quarter: 2014Q1

REPORT INFORMATION
  Report Type: Spontaneous
  Country: US (occurrence: US)
  Receive Date: 20140310
  Receipt Date: 20140310
  Transmission Date: 20141002
  Serious: No
  Sender: FDA-Public Use
  Company Number: US-ASTELLAS-2014US000073

PATIENT
  Sex: Male

DRUGS (1)
  1. XTANDI [Suspect]
     Indication: PROSTATE CANCER
     Dosage: 120 MG, DAILY
     Route: 048
     Dates: start: 20130416

REACTIONS (3)
  - Incorrect dose administered [Unknown]
  - Alopecia [Unknown]
  - Asthenia [Not Recovered/Not Resolved]
